FAERS Safety Report 8780130 (Version 1)
Quarter: 2012Q4

REPORT INFORMATION
  Report Type: 
  Country: US (occurrence: None)
  Receive Date: 20120831
  Receipt Date: 20120831
  Transmission Date: 20130627
  Serious: Yes (Other)
  Sender: FDA-Public Use
  Company Number: None

PATIENT
  Age: 48 Year
  Sex: Female
  Weight: 89.5 kg

DRUGS (16)
  1. LANTUS [Suspect]
     Indication: TYPE 2 DIABETES MELLITUS
     Route: 058
     Dates: start: 20120802, end: 20120807
  2. TRAZADONE [Concomitant]
  3. TRAMADOL [Concomitant]
  4. SPIRIVA [Concomitant]
  5. QVAR [Concomitant]
  6. OMEPRAZOLE [Concomitant]
  7. NEURONTIN [Concomitant]
  8. METFORMIN ER [Concomitant]
  9. GLIPIZIDE ER [Concomitant]
  10. CLARITIN [Concomitant]
  11. CALCIUM + D [Concomitant]
  12. PROVENTIL HFA [Concomitant]
  13. ACCUPRIL [Concomitant]
  14. LIPITOR [Concomitant]
  15. TRUE2GO GLUCOMETER AND SUPPLIES [Concomitant]
  16. SURE COMFORT 1ML 29G 1/2^ SYRINGE [Concomitant]

REACTIONS (4)
  - Aura [None]
  - Vision blurred [None]
  - Migraine [None]
  - Pain [None]
